FAERS Safety Report 9325794 (Version 1)
Quarter: 2013Q2

REPORT INFORMATION
  Report Type: Spontaneous
  Country: FI (occurrence: FI)
  Receive Date: 20130604
  Receipt Date: 20130604
  Transmission Date: 20140414
  Serious: Yes (Hospitalization, Other)
  Sender: FDA-Public Use
  Company Number: FI-ELI_LILLY_AND_COMPANY-FI201305007700

PATIENT
  Age: 82 Year
  Sex: Female

DRUGS (16)
  1. FORSTEO [Suspect]
     Indication: OSTEOPOROSIS
     Dosage: 20 UG, QD
     Route: 058
     Dates: start: 20121205
  2. CARDACE [Concomitant]
     Indication: BLOOD PRESSURE
     Dosage: UNK, UNKNOWN
     Route: 065
  3. ZANIDIP [Concomitant]
     Indication: BLOOD PRESSURE
     Dosage: 10 MG, UNKNOWN
     Route: 065
  4. FLORINEF [Concomitant]
     Indication: HYPOTHALAMO-PITUITARY DISORDER
     Dosage: UNK, UNKNOWN
     Route: 065
  5. PREDNISOLON [Concomitant]
     Dosage: 7.5 MG, UNKNOWN
     Route: 065
  6. HYDROCORTISON [Concomitant]
     Dosage: UNK, UNKNOWN
     Route: 065
  7. THYROXIN [Concomitant]
     Indication: HYPOTHYROIDISM
     Dosage: UNK, UNKNOWN
     Route: 065
  8. SOMAC [Concomitant]
     Dosage: UNK, UNKNOWN
     Route: 065
  9. SPIRESIS [Concomitant]
     Indication: DIURETIC THERAPY
     Dosage: UNK, UNKNOWN
     Route: 065
  10. FURESIS [Concomitant]
     Dosage: UNK, UNKNOWN
     Route: 065
  11. SYMBICORT [Concomitant]
     Indication: ASTHMA
     Dosage: UNK, UNKNOWN
     Route: 065
  12. VENTOLINE                          /00139501/ [Concomitant]
     Indication: ASTHMA
     Dosage: UNK, UNKNOWN
     Route: 065
  13. PANADOL [Concomitant]
     Indication: PAIN
     Dosage: UNK, UNKNOWN
     Route: 065
  14. CORTISONE [Concomitant]
     Dosage: UNK, UNKNOWN
     Route: 065
  15. INNOHEP [Concomitant]
     Indication: COAGULOPATHY
     Dosage: UNK, UNKNOWN
     Route: 065
  16. VITAMIN B [Concomitant]
     Dosage: UNK, UNKNOWN
     Route: 065

REACTIONS (2)
  - Wound [Recovering/Resolving]
  - Fall [Unknown]
